FAERS Safety Report 21052208 (Version 9)
Quarter: 2023Q1

REPORT INFORMATION
  Report Type: Report from Study
  Country: US (occurrence: US)
  Receive Date: 20220707
  Receipt Date: 20230218
  Transmission Date: 20230417
  Serious: Yes (Hospitalization, Other)
  Sender: FDA-Public Use
  Company Number: US-NOVARTISTESTPH-NVSC2022US154493

PATIENT
  Sex: Male
  Weight: 100.68 kg

DRUGS (7)
  1. TREPROSTINIL [Suspect]
     Active Substance: TREPROSTINIL
     Indication: Pulmonary arterial hypertension
     Dosage: 13.5NG/KG/MIN, CONT
     Route: 058
     Dates: start: 20220626
  2. TREPROSTINIL [Suspect]
     Active Substance: TREPROSTINIL
     Dosage: 13.5 NG/KG/MIN, CONT
     Route: 058
  3. TREPROSTINIL [Suspect]
     Active Substance: TREPROSTINIL
     Dosage: 13.5 NG/KG/MIN, CONT
     Route: 058
  4. TYVASO [Concomitant]
     Active Substance: TREPROSTINIL
     Indication: Product used for unknown indication
     Dosage: UNK
     Route: 065
  5. SILDENAFIL CITRATE [Concomitant]
     Active Substance: SILDENAFIL CITRATE
     Indication: Product used for unknown indication
     Dosage: UNK
     Route: 065
  6. REMODULIN [Concomitant]
     Active Substance: TREPROSTINIL
     Indication: Product used for unknown indication
     Dosage: UNK
     Route: 065
  7. DILTIAZEM [Concomitant]
     Active Substance: DILTIAZEM
     Indication: Product used for unknown indication
     Dosage: UNK
     Route: 065

REACTIONS (13)
  - Lung disorder [Unknown]
  - Back pain [Unknown]
  - Peripheral coldness [Unknown]
  - Syncope [Unknown]
  - Device infusion issue [Unknown]
  - Pain [Unknown]
  - Pain in extremity [Unknown]
  - Headache [Unknown]
  - Renal impairment [Unknown]
  - Blood iron decreased [Unknown]
  - Chapped lips [Unknown]
  - Infusion site pain [Unknown]
  - Infusion site erythema [Unknown]
